FAERS Safety Report 20341154 (Version 4)
Quarter: 2022Q1

REPORT INFORMATION
  Report Type: Report from Study
  Country: BR (occurrence: BR)
  Receive Date: 20220117
  Receipt Date: 20220207
  Transmission Date: 20220424
  Serious: Yes (Hospitalization, Other)
  Sender: FDA-Public Use
  Company Number: BR-NOVARTISPH-NVSC2022BR008304

PATIENT
  Age: 50 Year
  Sex: Female

DRUGS (4)
  1. PIQRAY [Suspect]
     Active Substance: ALPELISIB
     Indication: Lung neoplasm malignant
     Dosage: 150 MG, QD (STRENGTH: 2 TABLETS) (STARTED LAST WEEK OF DEC 2021)
     Route: 065
     Dates: start: 20211226
  2. PIQRAY [Suspect]
     Active Substance: ALPELISIB
     Indication: Neoplasm
     Dosage: 1 DOSAGE FORM, QD (STRENGTH: 1 TABLET)
     Route: 065
     Dates: start: 202201
  3. PIQRAY [Suspect]
     Active Substance: ALPELISIB
     Dosage: 2 DOSAGE FORM (2 TABLET)
     Route: 048
     Dates: start: 20211230
  4. PIQRAY [Suspect]
     Active Substance: ALPELISIB
     Dosage: 150 MG, QD (STRENGTH: 2 TABLETS)
     Route: 065
     Dates: start: 20220111

REACTIONS (30)
  - Dehydration [Unknown]
  - Metastases to lung [Unknown]
  - Gastrointestinal carcinoma [Recovered/Resolved]
  - Second primary malignancy [Recovered/Resolved]
  - Carcinoembryonic antigen increased [Unknown]
  - Mean cell volume increased [Unknown]
  - Gamma-glutamyltransferase increased [Unknown]
  - Lymphocyte count decreased [Unknown]
  - Blood calcium decreased [Unknown]
  - Blood glucose abnormal [Unknown]
  - Functional gastrointestinal disorder [Not Recovered/Not Resolved]
  - Nausea [Recovered/Resolved]
  - Diarrhoea [Unknown]
  - Vomiting [Unknown]
  - Malaise [Unknown]
  - Nausea [Unknown]
  - Haemoglobin decreased [Unknown]
  - Red blood cell count decreased [Unknown]
  - Illness [Unknown]
  - Abdominal pain [Not Recovered/Not Resolved]
  - Product use in unapproved indication [Not Recovered/Not Resolved]
  - Haematocrit decreased [Unknown]
  - Mean cell haemoglobin decreased [Unknown]
  - Red cell distribution width increased [Unknown]
  - White blood cell count decreased [Unknown]
  - Eosinophil count increased [Unknown]
  - Neutrophil count decreased [Unknown]
  - Monocyte count increased [Unknown]
  - Activated partial thromboplastin time prolonged [Unknown]
  - Carbohydrate antigen 19-9 increased [Unknown]

NARRATIVE: CASE EVENT DATE: 20211226
